FAERS Safety Report 18181044 (Version 5)
Quarter: 2022Q2

REPORT INFORMATION
  Report Type: Report from Study
  Country: US (occurrence: US)
  Receive Date: 20200821
  Receipt Date: 20220411
  Transmission Date: 20220721
  Serious: Yes (Death)
  Sender: FDA-Public Use
  Company Number: US-PFIZER INC-2020321387

PATIENT
  Age: 81 Year
  Sex: Male
  Weight: 92.063 kg

DRUGS (9)
  1. TALAZOPARIB [Suspect]
     Active Substance: TALAZOPARIB
     Indication: Prostate cancer metastatic
     Dosage: 1.0 MG, 1X/DAY
     Route: 048
     Dates: start: 20180406, end: 20180502
  2. TALAZOPARIB [Suspect]
     Active Substance: TALAZOPARIB
     Dosage: 0.50 MG, 1X/DAY
     Route: 048
     Dates: start: 20180503, end: 20200818
  3. ENZALUTAMIDE [Suspect]
     Active Substance: ENZALUTAMIDE
     Indication: Prostate cancer metastatic
     Dosage: 160 MG, 1X/DAY
     Route: 048
     Dates: start: 20180406, end: 20200818
  4. CALCIUM\CHOLECALCIFEROL [Concomitant]
     Active Substance: CALCIUM\CHOLECALCIFEROL
     Indication: Nutritional supplementation
     Dosage: 1 TAB, BID
     Route: 048
     Dates: start: 20171116, end: 20200814
  5. RETINOL [Concomitant]
     Active Substance: RETINOL
     Indication: Nutritional supplementation
     Dosage: 1 TAB, QD
     Route: 048
     Dates: start: 20171116, end: 20200814
  6. VITAMIN B12 [Concomitant]
     Active Substance: CYANOCOBALAMIN
     Indication: Nutritional supplementation
     Dosage: 1 TAB, QD
     Route: 048
     Dates: start: 201706, end: 20200814
  7. PRADAXA [Concomitant]
     Active Substance: DABIGATRAN ETEXILATE MESYLATE
     Indication: Arrhythmia prophylaxis
     Dosage: 75 MG, BID
     Route: 048
     Dates: start: 201802, end: 20200814
  8. PRILOSEC [Concomitant]
     Active Substance: OMEPRAZOLE MAGNESIUM
     Indication: Dyspepsia
     Dosage: 20 MG, QD
     Route: 048
     Dates: start: 20180410, end: 20200814
  9. ESCITALOPRAM [Concomitant]
     Active Substance: ESCITALOPRAM OXALATE
     Indication: Depression
     Dosage: 10 MG, QD
     Route: 048
     Dates: start: 20181104, end: 20200814

REACTIONS (1)
  - Pneumonia necrotising [Fatal]

NARRATIVE: CASE EVENT DATE: 20200814
